FAERS Safety Report 5774014-3 (Version None)
Quarter: 2008Q2

REPORT INFORMATION
  Report Type: 
  Country: None (occurrence: None)
  Receive Date: 20080616
  Receipt Date: 20080604
  Transmission Date: 20081010
  Serious: Yes (Other)
  Sender: FDA-Public Use
  Company Number: GB-ROCHE-566803

PATIENT
  Sex: Female

DRUGS (6)
  1. PEGASYS [Suspect]
     Indication: HEPATITIS C
     Route: 058
     Dates: start: 20080307, end: 20080321
  2. PEGASYS [Suspect]
     Route: 058
     Dates: start: 20080404
  3. PEGASYS [Suspect]
     Route: 058
  4. COPEGUS [Suspect]
     Indication: DRUG USE FOR UNKNOWN INDICATION
     Route: 065
     Dates: start: 20080307, end: 20080321
  5. COPEGUS [Suspect]
     Route: 065
     Dates: start: 20080404
  6. COPEGUS [Suspect]
     Route: 065

REACTIONS (1)
  - PHLEBITIS [None]
